FAERS Safety Report 5567924-3 (Version None)
Quarter: 2007Q4

REPORT INFORMATION
  Report Type: 
  Country: None (occurrence: None)
  Receive Date: 20071220
  Receipt Date: 20071211
  Transmission Date: 20080405
  Serious: Yes (Other)
  Sender: FDA-Public Use
  Company Number: US-JNJFOC-20071203465

PATIENT
  Sex: Female
  Weight: 62.6 kg

DRUGS (5)
  1. DURAGESIC-100 [Suspect]
     Indication: PAIN
     Route: 062
  2. REYATAZ [Suspect]
     Indication: HIV INFECTION
     Route: 048
  3. LEXIVA [Concomitant]
     Indication: HIV INFECTION
     Route: 048
  4. XANAX [Concomitant]
     Indication: DEPRESSION
     Route: 048
  5. HYDROCHLOROTHIAZIDE [Concomitant]
     Indication: HYPERTENSION
     Route: 048

REACTIONS (8)
  - ABDOMINAL PAIN UPPER [None]
  - DEPRESSION [None]
  - HIV TEST POSITIVE [None]
  - INSOMNIA [None]
  - MULTIPLE ALLERGIES [None]
  - PHARMACEUTICAL PRODUCT COMPLAINT [None]
  - ULCER [None]
  - WITHDRAWAL SYNDROME [None]
